FAERS Safety Report 12990207 (Version 6)
Quarter: 2017Q3

REPORT INFORMATION
  Report Type: Spontaneous
  Country: PT (occurrence: PT)
  Receive Date: 20161201
  Receipt Date: 20170717
  Transmission Date: 20171127
  Serious: Yes (Other)
  Sender: FDA-Public Use
  Company Number: PT-SA-2016SA213891

PATIENT
  Age: 49 Year
  Sex: Female
  Weight: 54 kg

DRUGS (4)
  1. IMMUNOGLOBULIN HUMAN NORMAL [Concomitant]
     Active Substance: HUMAN IMMUNOGLOBULIN G
  2. AUBAGIO [Suspect]
     Active Substance: TERIFLUNOMIDE
     Indication: MULTIPLE SCLEROSIS
     Route: 048
     Dates: start: 20160705, end: 20170127
  3. INTERFERON BETA NOS [Concomitant]
     Active Substance: INTERFERON BETA
  4. PROVERA [Concomitant]
     Active Substance: MEDROXYPROGESTERONE ACETATE
     Dates: start: 201603, end: 201603

REACTIONS (5)
  - Alopecia [Recovered/Resolved]
  - Fatigue [Recovered/Resolved]
  - Thrombocytopenia [Recovered/Resolved]
  - Weight decreased [Unknown]
  - Diarrhoea [Recovered/Resolved]

NARRATIVE: CASE EVENT DATE: 20160705
